FAERS Safety Report 9425892 (Version 1)
Quarter: 2013Q3

REPORT INFORMATION
  Report Type: Spontaneous
  Country: US (occurrence: US)
  Receive Date: 20130729
  Receipt Date: 20130729
  Transmission Date: 20140515
  Serious: Yes (Other)
  Sender: FDA-Public Use
  Company Number: US-RB-056557-13

PATIENT
  Age: 50 Year
  Sex: Male

DRUGS (1)
  1. SUBOXONE TABLET [Suspect]
     Indication: PAIN
     Dosage: DOSING  DETAILS UNKNOWN
     Route: 065

REACTIONS (7)
  - Wrong technique in drug usage process [Recovered/Resolved]
  - Off label use [Recovered/Resolved]
  - Hypersensitivity [Recovered/Resolved]
  - Pruritus [Recovered/Resolved]
  - Tunnel vision [Recovered/Resolved]
  - Urticaria [Recovered/Resolved]
  - Disorientation [Recovered/Resolved]
